FAERS Safety Report 11796156 (Version 1)
Quarter: 2015Q4

REPORT INFORMATION
  Report Type: Report from Study
  Country: NL (occurrence: NL)
  Receive Date: 20151203
  Receipt Date: 20151203
  Transmission Date: 20160305
  Serious: Yes (Other)
  Sender: FDA-Public Use
  Company Number: NL-ROCHE-1671560

PATIENT

DRUGS (1)
  1. CAPECITABINE. [Suspect]
     Active Substance: CAPECITABINE
     Indication: RECTAL CANCER
     Route: 065

REACTIONS (8)
  - Pain [Unknown]
  - Infection [Unknown]
  - Palmar-plantar erythrodysaesthesia syndrome [Unknown]
  - Ill-defined disorder [Unknown]
  - Gastrointestinal toxicity [Unknown]
  - Arrhythmia [Unknown]
  - Toxicity to various agents [Unknown]
  - Skin toxicity [Unknown]
